FAERS Safety Report 9537870 (Version 1)
Quarter: 2013Q3

REPORT INFORMATION
  Report Type: Spontaneous
  Country: DE (occurrence: DE)
  Receive Date: 20130919
  Receipt Date: 20130919
  Transmission Date: 20140515
  Serious: Yes (Other)
  Sender: FDA-Public Use
  Company Number: GXKR2013DE003026

PATIENT
  Sex: 0

DRUGS (5)
  1. ACETYLSALICYLIC ACID [Suspect]
     Dosage: MATERNAL DOSE: 100 [MG/D ], GW12-37
     Route: 064
  2. EBASTEL [Suspect]
     Dosage: MATERNAL DOSE 20 [MG/D ], GW 0-24
     Route: 064
  3. FRAGMIN P [Concomitant]
     Dosage: MATERNAL DOSE: 5000 [IE/D], GW 26-37
     Route: 064
  4. SOLEDUM [Concomitant]
     Dosage: MATERNAL DOSE: UKN, 1ST TRIMESTER
     Route: 064
  5. FOLSAEURE [Concomitant]
     Dosage: MATERNAL DOSE: 5.0 [MG/D], 0-36.6
     Route: 064

REACTIONS (1)
  - Cerebral haemorrhage foetal [Recovered/Resolved]
